FAERS Safety Report 13697072 (Version 1)
Quarter: 2017Q2

REPORT INFORMATION
  Report Type: Spontaneous
  Country: IL (occurrence: IL)
  Receive Date: 20170628
  Receipt Date: 20170628
  Transmission Date: 20170830
  Serious: Yes (Other)
  Sender: FDA-Public Use
  Company Number: IL-TEVA-779042ACC

PATIENT
  Age: 68 Year
  Sex: Female

DRUGS (1)
  1. PACLITAXEL. [Suspect]
     Active Substance: PACLITAXEL
     Dosage: INFUSION RATE OF 250MG PER 3 HOURS
     Route: 042

REACTIONS (4)
  - Erythema [Unknown]
  - Tachypnoea [Unknown]
  - Feeling hot [Unknown]
  - Oxygen saturation decreased [Unknown]
